FAERS Safety Report 9222878 (Version 1)
Quarter: 2013Q2

REPORT INFORMATION
  Report Type: Spontaneous
  Country: FR (occurrence: FR)
  Receive Date: 20130410
  Receipt Date: 20130410
  Transmission Date: 20140414
  Serious: Yes (Hospitalization, Other)
  Sender: FDA-Public Use
  Company Number: FR-BAYER-2013-043070

PATIENT
  Age: 85 Year
  Sex: Female

DRUGS (9)
  1. CIFLOX [Suspect]
     Dosage: 1 DF, BID
     Route: 048
     Dates: start: 20130315, end: 20130319
  2. EUPHYLLINE L.A. [Interacting]
     Dosage: 1 DF, QD (300MG)
     Route: 048
     Dates: start: 2003, end: 20130320
  3. PARIET [Concomitant]
     Dosage: 1 DF, QD (20MG)
     Route: 048
  4. CACIT VITAMINE D3 [Concomitant]
     Dosage: 1 DF, QD
     Route: 048
  5. PLAVIX [Concomitant]
     Dosage: 1 DF, QD
     Route: 048
     Dates: start: 1994, end: 20130317
  6. FUROSEMIDE [Concomitant]
     Dosage: 40 MG, QD
     Route: 048
  7. PULMICORT [Concomitant]
     Dosage: 2 DF, BID (400 MCG/DOSE)
     Route: 055
  8. FORADIL [Concomitant]
     Dosage: 1 DF, BID
     Route: 055
  9. SPIRIVA [Concomitant]
     Dosage: 1 DF, QD
     Route: 055

REACTIONS (7)
  - Hyponatraemia [Recovered/Resolved]
  - Drug interaction [None]
  - Hypokalaemia [Recovered/Resolved]
  - Gastrointestinal disorder [Recovered/Resolved]
  - Diarrhoea [Recovered/Resolved]
  - Atrial fibrillation [Unknown]
  - Convulsion [Recovered/Resolved]
